FAERS Safety Report 20875331 (Version 2)
Quarter: 2022Q2

REPORT INFORMATION
  Report Type: Spontaneous
  Country: CH (occurrence: CH)
  Receive Date: 20220526
  Receipt Date: 20220606
  Transmission Date: 20220721
  Serious: Yes (Other)
  Sender: FDA-Public Use
  Company Number: None

PATIENT
  Age: 39 Year
  Sex: Female

DRUGS (10)
  1. FLUCONAZOLE [Interacting]
     Active Substance: FLUCONAZOLE
     Dosage: 200 MG, 1X/DAY
     Route: 042
     Dates: start: 20220412, end: 20220412
  2. FLUCONAZOLE [Interacting]
     Active Substance: FLUCONAZOLE
     Dosage: 50 MG, 1X/DAY
     Route: 048
     Dates: start: 20220413, end: 20220427
  3. HALDOL [Interacting]
     Active Substance: HALOPERIDOL
     Dosage: 5 MG, 2X/DAY(NOON, EVENING)
     Route: 048
  4. SERTINDOLE [Interacting]
     Active Substance: SERTINDOLE
     Dosage: 16 MG, 1X/DAY(EVENING)
     Route: 048
  5. PROMAZINE HYDROCHLORIDE [Interacting]
     Active Substance: PROMAZINE HYDROCHLORIDE
     Dosage: 25 MG, 2X/DAY
     Route: 048
  6. AMOXICILLIN\CLAVULANATE POTASSIUM [Concomitant]
     Active Substance: AMOXICILLIN\CLAVULANATE POTASSIUM
     Dosage: 1.2 G, 3X/DAY (1X/8H)
     Route: 042
  7. LANTUS [Concomitant]
     Active Substance: INSULIN GLARGINE
     Dosage: 30 IU, 1X/DAY
     Route: 058
  8. NOVORAPID [Concomitant]
     Active Substance: INSULIN ASPART
     Dosage: IF NECESSARY
     Dates: start: 20220412
  9. DAFALGAN [Concomitant]
     Active Substance: ACETAMINOPHEN
     Dosage: IF NECESSARY
  10. IMAZOL [CLOTRIMAZOLE;HEXAMIDINE ISETIONATE] [Concomitant]
     Dosage: 1 APPLICATION 2X/DAY TO AFFECTED AREAS
     Route: 003
     Dates: start: 20220412

REACTIONS (2)
  - Drug interaction [Not Recovered/Not Resolved]
  - Electrocardiogram QT prolonged [Not Recovered/Not Resolved]

NARRATIVE: CASE EVENT DATE: 20220412
